FAERS Safety Report 12563158 (Version 9)
Quarter: 2020Q2

REPORT INFORMATION
  Report Type: Spontaneous
  Country: US (occurrence: US)
  Receive Date: 20160715
  Receipt Date: 20200526
  Transmission Date: 20200713
  Serious: Yes (Hospitalization, Other)
  Sender: FDA-Public Use
  Company Number: US-PFIZER INC-2016305881

PATIENT
  Age: 65 Year
  Sex: Male
  Weight: 109 kg

DRUGS (86)
  1. LYRICA [Suspect]
     Active Substance: PREGABALIN
     Indication: HYPOAESTHESIA
  2. PRALUENT [Concomitant]
     Active Substance: ALIROCUMAB
     Dosage: 150 MG, UNK (1 INJ EVERY 14 DAYS)
     Dates: start: 20151208
  3. PRALUENT [Concomitant]
     Active Substance: ALIROCUMAB
     Dosage: 150 MG, UNK (1 INJ EVERY 14 DAYS)
     Dates: start: 20160105
  4. PRALUENT [Concomitant]
     Active Substance: ALIROCUMAB
     Dosage: 150 MG, UNK (1 INJ EVERY 14 DAYS)
     Dates: start: 20160216
  5. PRALUENT [Concomitant]
     Active Substance: ALIROCUMAB
     Dosage: 150 MG, UNK (1 INJ EVERY 14 DAYS)
     Dates: start: 20160816
  6. PRALUENT [Concomitant]
     Active Substance: ALIROCUMAB
     Dosage: 150 MG, UNK (1 INJ EVERY 14 DAYS)
     Dates: start: 20170117
  7. ZOLOFT [Concomitant]
     Active Substance: SERTRALINE HYDROCHLORIDE
     Dosage: 50 MG, UNK
     Dates: start: 20161201
  8. SODIUM BICARBONATE. [Concomitant]
     Active Substance: SODIUM BICARBONATE
     Dosage: 650 MG, 2X/DAY
     Dates: start: 20160614
  9. VITAMIN D3 [Concomitant]
     Active Substance: CHOLECALCIFEROL
     Dosage: 1000 IU, 1X/DAY (AS DIRECTED)
  10. IMDUR [Concomitant]
     Active Substance: ISOSORBIDE MONONITRATE
     Indication: CARDIAC DISORDER
     Dosage: 60 MG, 1X/DAY
     Route: 048
     Dates: start: 200901
  11. NITROSTAT [Concomitant]
     Active Substance: NITROGLYCERIN
     Dosage: UNK, AS NEEDED (5MG UP TO 15 MG)
  12. NITROSTAT [Concomitant]
     Active Substance: NITROGLYCERIN
     Dosage: 10 MG, UNK
     Dates: start: 20140605
  13. NITROSTAT [Concomitant]
     Active Substance: NITROGLYCERIN
     Dosage: UNK, 2X/DAY (NIGHT)
     Dates: start: 20151107
  14. NITROSTAT [Concomitant]
     Active Substance: NITROGLYCERIN
     Dosage: 5 MG, UNK
     Dates: start: 20161013
  15. PRALUENT [Concomitant]
     Active Substance: ALIROCUMAB
     Dosage: 150 MG, UNK (1 INJ EVERY 14 DAYS)
     Dates: start: 20151110
  16. PRALUENT [Concomitant]
     Active Substance: ALIROCUMAB
     Dosage: 150 MG, UNK (1 INJ EVERY 14 DAYS)
     Dates: start: 20160607
  17. PRALUENT [Concomitant]
     Active Substance: ALIROCUMAB
     Dosage: 150 MG, UNK (1 INJ EVERY 14 DAYS)
     Dates: start: 20160705
  18. PRALUENT [Concomitant]
     Active Substance: ALIROCUMAB
     Dosage: 150 MG, UNK (1 INJ EVERY 14 DAYS)
     Dates: start: 20161220
  19. FLU SHOT [Concomitant]
     Active Substance: INFLUENZA VIRUS VACCINE
     Dosage: UNK
     Dates: start: 20161012
  20. ZOLOFT [Concomitant]
     Active Substance: SERTRALINE HYDROCHLORIDE
     Indication: STRESS
     Dosage: 25 MG, 1X/DAY
     Dates: start: 20161021, end: 20161109
  21. PLAVIX [Concomitant]
     Active Substance: CLOPIDOGREL BISULFATE
     Indication: CARDIAC DISORDER
     Dosage: 75 MG, 1X/DAY
     Route: 048
     Dates: start: 200901
  22. ZEMPLAR [Concomitant]
     Active Substance: PARICALCITOL
     Dosage: 1 UG, 1X/DAY
  23. NITROSTAT [Concomitant]
     Active Substance: NITROGLYCERIN
     Dosage: UNK (TOOK 5)
     Dates: start: 20160915
  24. VITAMIN B12 [Concomitant]
     Active Substance: CYANOCOBALAMIN
     Indication: VITAMIN B COMPLEX DEFICIENCY
     Dosage: 1000 MG, 1X/DAY
     Dates: start: 20150910
  25. PRALUENT [Concomitant]
     Active Substance: ALIROCUMAB
     Dosage: 150 MG, UNK (1 INJ EVERY 14 DAYS)
     Dates: start: 20160524
  26. PRALUENT [Concomitant]
     Active Substance: ALIROCUMAB
     Dosage: 150 MG, UNK (1 INJ EVERY 14 DAYS)
     Dates: start: 20161011
  27. PRALUENT [Concomitant]
     Active Substance: ALIROCUMAB
     Dosage: 150 MG, UNK (1 INJ EVERY 14 DAYS)
     Dates: start: 20161205
  28. ZOLOFT [Concomitant]
     Active Substance: SERTRALINE HYDROCHLORIDE
     Dosage: 100 MG, UNK
     Dates: start: 20161121
  29. XANAX [Concomitant]
     Active Substance: ALPRAZOLAM
     Dosage: 0.5 MG, 3X/DAY (TAKES ONE TO TWO A DAY, MAYBE ONE AT NIGHT)
     Dates: start: 20160929
  30. LYRICA [Suspect]
     Active Substance: PREGABALIN
     Indication: NEUROPATHY PERIPHERAL
     Dosage: 50 MG, 2X/DAY
     Route: 048
  31. AVAPRO [Concomitant]
     Active Substance: IRBESARTAN
     Indication: BLOOD PRESSURE ABNORMAL
     Dosage: 300 MG, UNK
     Dates: start: 20161023
  32. NITROSTAT [Concomitant]
     Active Substance: NITROGLYCERIN
     Dosage: UNK
     Dates: start: 201510
  33. NITROSTAT [Concomitant]
     Active Substance: NITROGLYCERIN
     Dosage: UNK (5 TABLET)
  34. PRALUENT [Concomitant]
     Active Substance: ALIROCUMAB
     Dosage: 150 MG, UNK (1 INJ EVERY 14 DAYS)
     Dates: start: 20160301
  35. PRALUENT [Concomitant]
     Active Substance: ALIROCUMAB
     Dosage: 150 MG, UNK (1 INJ EVERY 14 DAYS)
     Dates: start: 20160329
  36. PRALUENT [Concomitant]
     Active Substance: ALIROCUMAB
     Dosage: 150 MG, UNK (1 INJ EVERY 14 DAYS)
     Dates: start: 20160510
  37. PRALUENT [Concomitant]
     Active Substance: ALIROCUMAB
     Dosage: 75 MG/ML  (Q2 WEEKS AS DIRECTED)
  38. ASPIRIN. [Concomitant]
     Active Substance: ASPIRIN
     Indication: CARDIAC DISORDER
     Dosage: 81 MG, 2X/DAY
     Route: 048
     Dates: start: 2009
  39. PENTOXIFYLLINE. [Concomitant]
     Active Substance: PENTOXIFYLLINE
     Indication: PAIN
     Dosage: 400 MG, 2X/DAY
     Route: 048
     Dates: start: 2000
  40. PENTOXIFYLLINE. [Concomitant]
     Active Substance: PENTOXIFYLLINE
     Dosage: 400 MG, 3X/DAY
     Route: 048
  41. ZEMPLAR [Concomitant]
     Active Substance: PARICALCITOL
     Indication: RENAL DISORDER
     Dosage: 1 UG, 4 X A WEEK
  42. AVAPRO [Concomitant]
     Active Substance: IRBESARTAN
     Dosage: 150 MG, 2X/DAY (AM + PM )
     Dates: start: 20161124
  43. AVAPRO [Concomitant]
     Active Substance: IRBESARTAN
     Dosage: 150 MG, 2X/DAY
  44. VITAMIN B12 [Concomitant]
     Active Substance: CYANOCOBALAMIN
     Dosage: 2000 MG, DAILY
  45. ZOLOFT [Concomitant]
     Active Substance: SERTRALINE HYDROCHLORIDE
     Dosage: 50 MG, 1X/DAY
  46. TORSEMIDE. [Concomitant]
     Active Substance: TORSEMIDE
     Dosage: 20 MG, UNK
     Dates: start: 20160929
  47. ASA [Concomitant]
     Active Substance: ASPIRIN
     Dosage: 81 MG, 1X/DAY
  48. TOPROL XL [Concomitant]
     Active Substance: METOPROLOL SUCCINATE
     Dosage: 25 MG, 2X/DAY IF BELOW 140 [25 MG IN AM; 25 MG IN PM]
     Route: 048
  49. HUMALOG [Concomitant]
     Active Substance: INSULIN LISPRO
     Dosage: 100 IU/ML, (59 UNITS CONTINUOUS IN PUMP)
  50. AVAPRO [Concomitant]
     Active Substance: IRBESARTAN
     Indication: CARDIAC DISORDER
     Dosage: 150 MG, 1X/DAY
     Dates: start: 2009, end: 20161021
  51. NITROSTAT [Concomitant]
     Active Substance: NITROGLYCERIN
     Dosage: 5 MG, UNK
     Dates: start: 20160924
  52. PRALUENT [Concomitant]
     Active Substance: ALIROCUMAB
     Indication: BLOOD CHOLESTEROL ABNORMAL
     Dosage: 150 MG, UNK (1 INJ EVERY 14 DAYS)
     Dates: start: 20150929
  53. PRALUENT [Concomitant]
     Active Substance: ALIROCUMAB
     Dosage: 150 MG, UNK (1 INJ EVERY 14 DAYS)
     Dates: start: 20151013
  54. PRALUENT [Concomitant]
     Active Substance: ALIROCUMAB
     Dosage: 150 MG, UNK (1 INJ EVERY 14 DAYS)
     Dates: start: 20151124
  55. PRALUENT [Concomitant]
     Active Substance: ALIROCUMAB
     Dosage: 150 MG, UNK (1 INJ EVERY 14 DAYS)
     Dates: start: 20160202
  56. PRALUENT [Concomitant]
     Active Substance: ALIROCUMAB
     Dosage: 150 MG, UNK (1 INJ EVERY 14 DAYS)
     Dates: start: 20160315
  57. PRALUENT [Concomitant]
     Active Substance: ALIROCUMAB
     Dosage: 150 MG, UNK (1 INJ EVERY 14 DAYS)
     Dates: start: 20160426
  58. PRALUENT [Concomitant]
     Active Substance: ALIROCUMAB
     Dosage: 150 MG, UNK (1 INJ EVERY 14 DAYS)
     Dates: start: 20160719
  59. PRALUENT [Concomitant]
     Active Substance: ALIROCUMAB
     Dosage: 150 MG, UNK (1 INJ EVERY 14 DAYS)
     Dates: start: 20160802
  60. PRALUENT [Concomitant]
     Active Substance: ALIROCUMAB
     Dosage: 150 MG, UNK (1 INJ EVERY 14 DAYS)
     Dates: start: 20160913
  61. PRALUENT [Concomitant]
     Active Substance: ALIROCUMAB
     Dosage: 150 MG, UNK (1 INJ EVERY 14 DAYS)
     Dates: start: 20161025
  62. PRALUENT [Concomitant]
     Active Substance: ALIROCUMAB
     Dosage: 150 MG, UNK (1 INJ EVERY 14 DAYS)
     Dates: start: 20161122
  63. LYRICA [Suspect]
     Active Substance: PREGABALIN
     Indication: PARAESTHESIA
     Dosage: 75 MG
  64. TOPROL XL [Concomitant]
     Active Substance: METOPROLOL SUCCINATE
     Indication: CARDIAC DISORDER
     Dosage: 50 MG, 1X/DAY [50 MG IN AM IF BP IS ABOVE 150]
     Route: 048
     Dates: start: 200901
  65. IMDUR [Concomitant]
     Active Substance: ISOSORBIDE MONONITRATE
     Dosage: 60 MG, 1X/DAY (IN THE MORNING)
     Route: 048
  66. AVAPRO [Concomitant]
     Active Substance: IRBESARTAN
     Indication: RENAL DISORDER
     Dosage: 300 MG, UNK
     Dates: start: 20161022
  67. AVAPRO [Concomitant]
     Active Substance: IRBESARTAN
     Dosage: 300 MG, UNK
     Dates: start: 20161024
  68. PRALUENT [Concomitant]
     Active Substance: ALIROCUMAB
     Dosage: 150 MG, UNK (1 INJ EVERY 14 DAYS)
     Dates: start: 20151027
  69. PRALUENT [Concomitant]
     Active Substance: ALIROCUMAB
     Dosage: 150 MG, UNK (1 INJ EVERY 14 DAYS)
     Dates: start: 20160119
  70. PRALUENT [Concomitant]
     Active Substance: ALIROCUMAB
     Dosage: 150 MG, UNK (1 INJ EVERY 14 DAYS)
     Dates: start: 20160621
  71. PRALUENT [Concomitant]
     Active Substance: ALIROCUMAB
     Dosage: 150 MG, UNK (1 INJ EVERY 14 DAYS)
     Dates: start: 20160926
  72. PRALUENT [Concomitant]
     Active Substance: ALIROCUMAB
     Dosage: 150 MG, UNK (1 INJ EVERY 14 DAYS)
     Dates: start: 20161108
  73. LANTUS [Concomitant]
     Active Substance: INSULIN GLARGINE
     Dosage: UNK
  74. TORSEMIDE. [Concomitant]
     Active Substance: TORSEMIDE
     Dosage: 20 MG, UNK
     Dates: start: 20161001
  75. HUMALOG [Concomitant]
     Active Substance: INSULIN LISPRO
     Indication: DIABETES MELLITUS
     Dosage: 100 IU/ML, (58 UNITS CONTINUOUS IN PUMP)
  76. VITAMIN D [Concomitant]
     Active Substance: VITAMIN D NOS
     Indication: VITAMIN D ABNORMAL
     Dosage: 7000 MG, DAILY
     Dates: start: 20150820
  77. VITAMIN B12 [Concomitant]
     Active Substance: CYANOCOBALAMIN
     Dosage: 1000 MG, DAILY
  78. PRALUENT [Concomitant]
     Active Substance: ALIROCUMAB
     Dosage: 150 MG, UNK (1 INJ EVERY 14 DAYS)
     Dates: start: 20151222
  79. PRALUENT [Concomitant]
     Active Substance: ALIROCUMAB
     Dosage: 150 MG, UNK (1 INJ EVERY 14 DAYS)
     Dates: start: 20160412
  80. PRALUENT [Concomitant]
     Active Substance: ALIROCUMAB
     Dosage: 150 MG, UNK (1 INJ EVERY 14 DAYS)
     Dates: start: 20160830
  81. PRALUENT [Concomitant]
     Active Substance: ALIROCUMAB
     Dosage: 150 MG, UNK (1 INJ EVERY 14 DAYS)
     Dates: start: 20170102
  82. FLU SHOT [Concomitant]
     Active Substance: INFLUENZA VIRUS VACCINE
     Dosage: UNK
     Dates: start: 20151021
  83. CARDURA [Concomitant]
     Active Substance: DOXAZOSIN MESYLATE
     Dosage: 1 MG, 1X/DAY (IN PM)
     Dates: start: 20170111
  84. ZOLOFT [Concomitant]
     Active Substance: SERTRALINE HYDROCHLORIDE
     Indication: DEPRESSION
     Dosage: 50 MG, UNK
     Dates: start: 20161110
  85. TORSEMIDE. [Concomitant]
     Active Substance: TORSEMIDE
     Dosage: 20 MG, UNK
     Dates: start: 20161005
  86. ZYLET [Concomitant]
     Active Substance: LOTEPREDNOL ETABONATE\TOBRAMYCIN
     Dosage: 2 GTT, EVERY 4 HRS (0.5%-0.3% SUSPENSION) (2 GTT)

REACTIONS (8)
  - Contusion [Unknown]
  - Poor quality product administered [Unknown]
  - Condition aggravated [Unknown]
  - Drug ineffective [Unknown]
  - Neuropathy peripheral [Unknown]
  - Blood glucose abnormal [Unknown]
  - Injection site infection [Unknown]
  - Product physical issue [Unknown]
